FAERS Safety Report 25139792 (Version 1)
Quarter: 2025Q1

REPORT INFORMATION
  Report Type: Spontaneous
  Country: US (occurrence: US)
  Receive Date: 20250331
  Receipt Date: 20250331
  Transmission Date: 20250408
  Serious: Yes (Hospitalization, Other)
  Sender: AUROBINDO
  Company Number: US-AUROBINDO-AUR-APL-2025-016465

PATIENT
  Age: 25 Year
  Sex: Female

DRUGS (4)
  1. BUPROPION HYDROCHLORIDE [Suspect]
     Active Substance: BUPROPION HYDROCHLORIDE
     Indication: Depression
     Route: 065
  2. FLUOXETINE [Suspect]
     Active Substance: FLUOXETINE HYDROCHLORIDE
     Indication: Depression
     Route: 065
  3. TRAZODONE [Suspect]
     Active Substance: TRAZODONE HYDROCHLORIDE
     Indication: Depression
     Route: 065
  4. SERTRALINE [Concomitant]
     Active Substance: SERTRALINE HYDROCHLORIDE
     Indication: Depression
     Route: 065

REACTIONS (14)
  - Unresponsive to stimuli [Unknown]
  - Apnoea [Unknown]
  - Sinus tachycardia [Unknown]
  - Hypotension [Unknown]
  - Mental status changes [Unknown]
  - Coma [Unknown]
  - Areflexia [Unknown]
  - Respiratory acidosis [Unknown]
  - Seizure [Unknown]
  - Somnolence [Unknown]
  - Respiratory depression [Unknown]
  - Toxicity to various agents [Unknown]
  - Intentional overdose [Unknown]
  - Treatment noncompliance [Unknown]
